FAERS Safety Report 11100852 (Version 4)
Quarter: 2015Q2

REPORT INFORMATION
  Report Type: Spontaneous
  Country: AU (occurrence: AU)
  Receive Date: 20150508
  Receipt Date: 20150518
  Transmission Date: 20150821
  Serious: Yes (Life-Threatening)
  Sender: FDA-Public Use
  Company Number: PHHY2015AU054081

PATIENT
  Age: 62 Year
  Sex: Male

DRUGS (9)
  1. PALIPERIDONE [Suspect]
     Active Substance: PALIPERIDONE
     Dosage: 150 MG, EVERY 3 WEEKS
     Route: 030
  2. CLOZAPINE. [Suspect]
     Active Substance: CLOZAPINE
     Indication: SCHIZOPHRENIA
     Dosage: 500 MG, QD
     Route: 065
  3. VALPROIC ACID. [Suspect]
     Active Substance: VALPROIC ACID
     Indication: SCHIZOPHRENIA
     Dosage: 1500 MG, QD
     Route: 065
  4. AMISULPRIDE [Suspect]
     Active Substance: AMISULPRIDE
     Indication: SCHIZOPHRENIA
     Dosage: 600 MG, QD
     Route: 065
  5. HALOPERIDOL. [Suspect]
     Active Substance: HALOPERIDOL
     Indication: SCHIZOPHRENIA
     Dosage: 5 MG
     Route: 065
  6. PALIPERIDONE [Suspect]
     Active Substance: PALIPERIDONE
     Indication: SCHIZOPHRENIA
     Dosage: 150 MG, EVERY MONTH
     Route: 030
  7. CLOZAPINE. [Suspect]
     Active Substance: CLOZAPINE
     Dosage: 375 MG, QD
     Route: 065
  8. CLOZAPINE. [Suspect]
     Active Substance: CLOZAPINE
     Dosage: 400 MG, QD
  9. AMISULPRIDE [Suspect]
     Active Substance: AMISULPRIDE
     Dosage: 400 MG, BID
     Route: 065

REACTIONS (11)
  - Increased bronchial secretion [Unknown]
  - Lower respiratory tract infection [Unknown]
  - General physical health deterioration [Unknown]
  - Productive cough [Unknown]
  - Toxicity to various agents [Unknown]
  - Tachypnoea [Unknown]
  - Drug level increased [Unknown]
  - Therapeutic response decreased [Unknown]
  - Pneumonia [Recovered/Resolved]
  - Salivary hypersecretion [Unknown]
  - Agitation [Unknown]
